FAERS Safety Report 8390150-X (Version None)
Quarter: 2012Q2

REPORT INFORMATION
  Report Type: 
  Country: None (occurrence: None)
  Receive Date: 20120529
  Receipt Date: 20120522
  Transmission Date: 20120825
  Serious: Yes (Life-Threatening)
  Sender: FDA-Public Use
  Company Number: FR-PFIZER INC-2002130610FR

PATIENT
  Age: 30 Year
  Sex: Female
  Weight: 63 kg

DRUGS (7)
  1. CYCLOPHOSPHAMIDE [Suspect]
     Dosage: 850 MG, EVERY 3 WEEKS, CYCLE 2
     Route: 042
     Dates: start: 20020204, end: 20020204
  2. EPIRUBICIN HYDROCHLORIDE [Suspect]
     Indication: BREAST CANCER
     Dosage: 170 MG, EVERY 3 WEEKS, CYCLE 1
     Route: 042
     Dates: start: 20020114, end: 20020114
  3. FLUOROURACIL [Suspect]
     Dosage: 850 MG, EVERY 3 WEEKS, CYCLE 2
     Route: 042
     Dates: start: 20020204, end: 20020204
  4. FLUOROURACIL [Suspect]
     Indication: BREAST CANCER
     Dosage: 850 MG, EVERY 3 WEEKS, CYCLE 1
     Route: 042
     Dates: start: 20020114, end: 20020114
  5. GLUCOSE INJECTION [Concomitant]
     Dosage: UNK
     Dates: start: 20020101, end: 20020101
  6. CYCLOPHOSPHAMIDE [Suspect]
     Indication: BREAST CANCER
     Dosage: 850 MG, EVERY 3 WEEKS, CYCLE 1
     Route: 042
     Dates: start: 20020114, end: 20020114
  7. EPIRUBICIN HYDROCHLORIDE [Suspect]
     Dosage: 170 MG, EVERY 3 WEEKS, CYCLE 2
     Route: 042
     Dates: start: 20020204, end: 20020204

REACTIONS (1)
  - HAEMOLYTIC ANAEMIA [None]
